FAERS Safety Report 9479173 (Version 1)
Quarter: 2013Q3

REPORT INFORMATION
  Report Type: Spontaneous
  Country: DE (occurrence: DE)
  Receive Date: 20130827
  Receipt Date: 20130827
  Transmission Date: 20140515
  Serious: Yes (Death)
  Sender: FDA-Public Use
  Company Number: DE-BAXTER-2013BAX032649

PATIENT
  Age: 70 Year
  Sex: Female

DRUGS (3)
  1. DIANEAL PD4 GLUCOSE 1,36 % W/V [Suspect]
     Indication: PERITONEAL DIALYSIS
     Route: 033
     Dates: start: 20130805, end: 20130814
  2. EXTRANEAL [Suspect]
     Indication: PERITONEAL DIALYSIS
     Route: 033
     Dates: start: 20130805, end: 20130814
  3. NUTRINEAL PD4 MIT 1,1% AMINOS?UREN [Suspect]
     Indication: PERITONEAL DIALYSIS
     Route: 033

REACTIONS (3)
  - Death [Fatal]
  - General physical health deterioration [Unknown]
  - Asthenia [Unknown]
